FAERS Safety Report 20418861 (Version 1)
Quarter: 2022Q1

REPORT INFORMATION
  Report Type: Other
  Country: FR (occurrence: FR)
  Receive Date: 20220202
  Receipt Date: 20220202
  Transmission Date: 20220423
  Serious: Yes (Other)
  Sender: FDA-Public Use
  Company Number: FR-CELLTRION INC.-2022FR000796

PATIENT

DRUGS (4)
  1. RITUXIMAB [Suspect]
     Active Substance: RITUXIMAB
     Indication: Nephrotic syndrome
     Dosage: 1 G, 2 DOSES
     Route: 065
     Dates: start: 201603
  2. RITUXIMAB [Suspect]
     Active Substance: RITUXIMAB
     Dosage: 1 G
     Route: 065
     Dates: start: 20210630
  3. RITUXIMAB [Suspect]
     Active Substance: RITUXIMAB
     Dosage: 1 G, SINGLE DOSE
     Route: 065
     Dates: start: 202111
  4. RITUXIMAB [Suspect]
     Active Substance: RITUXIMAB
     Dosage: 1 G, 2 DOSES
     Route: 065
     Dates: start: 201603

REACTIONS (3)
  - Angioedema [Unknown]
  - Urticaria [Unknown]
  - Off label use [Unknown]
